FAERS Safety Report 21997243 (Version 1)
Quarter: 2023Q1

REPORT INFORMATION
  Report Type: Spontaneous
  Country: CA (occurrence: CA)
  Receive Date: 20230216
  Receipt Date: 20230216
  Transmission Date: 20230418
  Serious: Yes (Other)
  Sender: FDA-Public Use
  Company Number: CA-002147023-NVSC2023CA030763

PATIENT
  Age: 3 Month

DRUGS (8)
  1. METHOTREXATE [Suspect]
     Active Substance: METHOTREXATE
     Indication: Brain sarcoma
     Dosage: UNK
     Route: 065
  2. ETOPOSIDE [Suspect]
     Active Substance: ETOPOSIDE
     Indication: Chloroma
     Dosage: UNK
     Route: 065
  3. HYDROCORTISONE [Suspect]
     Active Substance: HYDROCORTISONE
     Indication: Brain sarcoma
     Dosage: UNK
     Route: 065
  4. ASPARAGINASE [Suspect]
     Active Substance: ASPARAGINASE
     Indication: Chloroma
     Dosage: UNK
     Route: 065
  5. CYTARABINE [Suspect]
     Active Substance: CYTARABINE
     Indication: Chloroma
     Dosage: UNK
     Route: 065
  6. CYTARABINE [Suspect]
     Active Substance: CYTARABINE
     Indication: Brain sarcoma
  7. DAUNORUBICIN [Suspect]
     Active Substance: DAUNORUBICIN
     Indication: Chloroma
     Dosage: UNK
     Route: 065
  8. FLUDARABINE PHOSPHATE [Suspect]
     Active Substance: FLUDARABINE PHOSPHATE
     Indication: Brain sarcoma
     Dosage: UNK
     Route: 042

REACTIONS (9)
  - Leukaemia recurrent [Unknown]
  - Brain sarcoma [Unknown]
  - Cerebellar tumour [Unknown]
  - General physical health deterioration [Unknown]
  - Hydrocephalus [Unknown]
  - Infection [Unknown]
  - Pyrexia [Unknown]
  - Septic shock [Unknown]
  - Product use in unapproved indication [Unknown]
